FAERS Safety Report 6878006-2 (Version None)
Quarter: 2010Q3

REPORT INFORMATION
  Report Type: 
  Country: None (occurrence: None)
  Receive Date: 20100727
  Receipt Date: 20100719
  Transmission Date: 20110219
  Serious: Yes (Hospitalization)
  Sender: FDA-Public Use
  Company Number: ES-ASTRAZENECA-2010SE33987

PATIENT
  Age: 30 Year
  Sex: Male

DRUGS (1)
  1. EMLA [Suspect]
     Indication: DEPILATION
     Route: 061
     Dates: start: 20100626, end: 20100626

REACTIONS (2)
  - METHAEMOGLOBINAEMIA [None]
  - OVERDOSE [None]
